FAERS Safety Report 16175631 (Version 1)
Quarter: 2019Q2

REPORT INFORMATION
  Report Type: Spontaneous
  Country: FR (occurrence: FR)
  Receive Date: 20190409
  Receipt Date: 20190409
  Transmission Date: 20190711
  Serious: Yes (Hospitalization)
  Sender: FDA-Public Use
  Company Number: FR-TEVA-2019-FR-1034630

PATIENT
  Age: 50 Year
  Sex: Male
  Weight: 75 kg

DRUGS (3)
  1. SILDENAFIL. [Suspect]
     Active Substance: SILDENAFIL
     Route: 048
  2. TADALAFIL. [Suspect]
     Active Substance: TADALAFIL
     Route: 048
  3. COMPLEMENT ALIMENTAIRE [Suspect]
     Active Substance: DIETARY SUPPLEMENT
     Indication: ERECTILE DYSFUNCTION
     Route: 048

REACTIONS (2)
  - Ischaemic stroke [Recovered/Resolved]
  - Product counterfeit [Not Recovered/Not Resolved]

NARRATIVE: CASE EVENT DATE: 20190305
